FAERS Safety Report 17920355 (Version 1)
Quarter: 2020Q2

REPORT INFORMATION
  Report Type: Spontaneous
  Country: JP (occurrence: JP)
  Receive Date: 20200620
  Receipt Date: 20200620
  Transmission Date: 20200714
  Serious: Yes (Death, Other)
  Sender: FDA-Public Use
  Company Number: NVSC2020JP172239

PATIENT
  Age: 74 Year
  Sex: Male

DRUGS (1)
  1. PREDNISOLONE. [Suspect]
     Active Substance: PREDNISOLONE
     Indication: IMMUNE-MEDIATED CHOLANGITIS
     Dosage: 40 MG, QD
     Route: 065

REACTIONS (3)
  - Immune-mediated cholangitis [Fatal]
  - Drug ineffective [Unknown]
  - Product use in unapproved indication [Unknown]
